FAERS Safety Report 8822957 (Version 1)
Quarter: 2012Q4

REPORT INFORMATION
  Report Type: 
  Country: US (occurrence: US)
  Receive Date: 20121003
  Receipt Date: 20121003
  Transmission Date: 20130627
  Serious: Yes (Other)
  Sender: FDA-Public Use
  Company Number: US-GLAXOSMITHKLINE-A0995843A

PATIENT
  Age: 52 Year
  Sex: Male
  Weight: 136.2 kg

DRUGS (18)
  1. BENLYSTA [Suspect]
     Indication: SYSTEMIC LUPUS ERYTHEMATOSUS
     Dosage: 120MG Cyclic
     Route: 042
     Dates: start: 20120601, end: 20120601
  2. PLAQUENIL [Concomitant]
     Dosage: 200MG Per day
  3. NEURONTIN [Concomitant]
     Dosage: 600MG Per day
  4. FOLIC ACID [Concomitant]
     Dosage: 1MG Per day
  5. METHOTREXATE [Concomitant]
  6. TAMSULOSIN [Concomitant]
     Dosage: .4MG Per day
  7. AVODART [Concomitant]
     Dosage: 5MG Per day
  8. VOLTAREN [Concomitant]
  9. ASPIRIN [Concomitant]
     Dosage: 81MG Per day
  10. CARAFATE [Concomitant]
  11. PREVACID [Concomitant]
  12. PENCID [Concomitant]
  13. VITAMIN E [Concomitant]
  14. FISH OIL [Concomitant]
  15. VITAMIN D [Concomitant]
  16. TYLENOL [Concomitant]
  17. BENADRYL [Concomitant]
  18. SOLUMEDROL [Concomitant]

REACTIONS (13)
  - Anaphylactic reaction [Recovered/Resolved]
  - Anaphylactoid shock [Recovered/Resolved]
  - Pharyngeal oedema [Recovered/Resolved]
  - Generalised erythema [Recovered/Resolved]
  - Blister [Recovered/Resolved]
  - Pruritus generalised [Recovered/Resolved]
  - Tremor [Recovered/Resolved]
  - Headache [Recovered/Resolved]
  - Rash generalised [Recovered/Resolved]
  - Neck pain [Not Recovered/Not Resolved]
  - Musculoskeletal pain [Not Recovered/Not Resolved]
  - Musculoskeletal stiffness [Not Recovered/Not Resolved]
  - Infusion related reaction [Recovered/Resolved]
